FAERS Safety Report 13187873 (Version 3)
Quarter: 2017Q1

REPORT INFORMATION
  Report Type: Spontaneous
  Country: FR (occurrence: FR)
  Receive Date: 20170206
  Receipt Date: 20170222
  Transmission Date: 20170428
  Serious: Yes (Hospitalization)
  Sender: FDA-Public Use
  Company Number: FR-ROCHE-1885962

PATIENT
  Age: 57 Year
  Sex: Female

DRUGS (11)
  1. LEVOTHYROX [Concomitant]
     Active Substance: LEVOTHYROXINE
     Indication: HYPOTHYROIDISM
     Route: 048
  2. ROACTEMRA [Suspect]
     Active Substance: TOCILIZUMAB
     Indication: RHEUMATOID ARTHRITIS
     Dosage: SOLUTION TO DILUTE FOR INFUSION?THE LAST INFUSION (THE 21ST) WAS ON 19/DEC/2016 AT 560 MG
     Route: 058
     Dates: start: 20150608, end: 20161219
  3. APRANAX [Suspect]
     Active Substance: NAPROXEN
     Indication: ARTHRALGIA
  4. OXYCODONE [Concomitant]
     Active Substance: OXYCODONE
  5. APRANAX [Suspect]
     Active Substance: NAPROXEN
     Indication: EPICONDYLITIS
     Dosage: COATED SCORED TABLET, 550 MG 4 DOSAGE FORMS (2 DOSAGE FORMS,2 IN 1 D)
     Route: 048
     Dates: start: 20161219, end: 20161223
  6. IMETH [Suspect]
     Active Substance: METHOTREXATE SODIUM
     Indication: RHEUMATOID ARTHRITIS
     Dosage: SCORED TABLET, 0.2041 MG (1.42
     Route: 048
     Dates: start: 20150608, end: 20161220
  7. CRESTOR [Concomitant]
     Active Substance: ROSUVASTATIN CALCIUM
     Indication: HYPERCHOLESTEROLAEMIA
     Route: 048
     Dates: end: 201612
  8. TITANOREINE (FRANCE) [Concomitant]
  9. PARACETAMOL [Concomitant]
     Active Substance: ACETAMINOPHEN
  10. ORENCIA [Concomitant]
     Active Substance: ABATACEPT
     Dosage: IN TOTAL: 50 INFUSIONS OF 700MG
     Route: 065
     Dates: start: 20090907, end: 201506
  11. MORPHINE [Concomitant]
     Active Substance: MORPHINE

REACTIONS (2)
  - Cellulitis [Recovered/Resolved]
  - Streptococcal abscess [Recovered/Resolved]

NARRATIVE: CASE EVENT DATE: 20161219
